FAERS Safety Report 24085058 (Version 7)
Quarter: 2025Q1

REPORT INFORMATION
  Report Type: Spontaneous
  Country: US (occurrence: US)
  Receive Date: 20240712
  Receipt Date: 20250115
  Transmission Date: 20250409
  Serious: Yes (Hospitalization, Other)
  Sender: PFIZER
  Company Number: US-PFIZER INC-2024SGN01305

PATIENT
  Age: 78 Year
  Sex: Female

DRUGS (4)
  1. TUKYSA [Suspect]
     Active Substance: TUCATINIB
  2. TUKYSA [Suspect]
     Active Substance: TUCATINIB
     Dosage: 150 MG, 2X/DAY (1 TABLET TWICE DAILY)
  3. TUKYSA [Suspect]
     Active Substance: TUCATINIB
     Dosage: 100 MG, 2X/DAY (50 MG; 2 TABLETS TWICE DAILY)
  4. TUKYSA [Suspect]
     Active Substance: TUCATINIB
     Dosage: 250 MG, 2X/DAY (150 MG + 50 MG TAKE 250 MG BID)
     Route: 048
     Dates: end: 202406

REACTIONS (4)
  - Femur fracture [Recovering/Resolving]
  - Lower limb fracture [Unknown]
  - Thrombosis [Unknown]
  - Cellulitis [Unknown]

NARRATIVE: CASE EVENT DATE: 20240101
